FAERS Safety Report 8530216-4 (Version None)
Quarter: 2012Q3

REPORT INFORMATION
  Report Type: 
  Country: None (occurrence: None)
  Receive Date: 20120723
  Receipt Date: 20120711
  Transmission Date: 20120928
  Serious: Yes (Other)
  Sender: FDA-Public Use
  Company Number: IL-VERTEX PHARMACEUTICALS INC.-000000000000001193

PATIENT
  Age: 18 Year
  Sex: Male

DRUGS (2)
  1. REMICADE [Concomitant]
     Indication: CROHN'S DISEASE
     Dosage: DOSAGE FORM: TABLET
     Route: 048
  2. INCIVO (TELAPREVIR) [Suspect]
     Indication: PRODUCT USED FOR UNKNOWN INDICATION
     Route: 042

REACTIONS (2)
  - HEADACHE [None]
  - INFUSION RELATED REACTION [None]
